FAERS Safety Report 20291971 (Version 2)
Quarter: 2022Q1

REPORT INFORMATION
  Report Type: Spontaneous
  Country: US (occurrence: US)
  Receive Date: 20220104
  Receipt Date: 20220215
  Transmission Date: 20220423
  Serious: No
  Sender: FDA-Public Use
  Company Number: US-PFIZER INC-202101742026

PATIENT
  Age: 22 Year
  Sex: Male
  Weight: 106.59 kg

DRUGS (1)
  1. GENOTROPIN [Suspect]
     Active Substance: SOMATROPIN
     Indication: Hypopituitarism
     Dosage: UNK, 1X/DAY (1.4 NIGHTLY)

REACTIONS (3)
  - Drug dose omission by device [Unknown]
  - Device breakage [Unknown]
  - Expired device used [Unknown]

NARRATIVE: CASE EVENT DATE: 20211204
